FAERS Safety Report 9831725 (Version 1)
Quarter: 2014Q1

REPORT INFORMATION
  Report Type: Spontaneous
  Country: FR (occurrence: FR)
  Receive Date: 20140121
  Receipt Date: 20140121
  Transmission Date: 20141002
  Serious: Yes (Death, Other)
  Sender: FDA-Public Use
  Company Number: FR-JNJFOC-20140108087

PATIENT
  Age: 41 Year
  Sex: Female

DRUGS (6)
  1. DOXORUBICIN [Suspect]
     Indication: PLASMA CELL LEUKAEMIA
     Dosage: DAY 4
     Route: 042
     Dates: start: 20110114, end: 20110114
  2. VELCADE [Suspect]
     Indication: PLASMA CELL LEUKAEMIA
     Route: 042
     Dates: start: 20110111, end: 20110211
  3. DEXAMETHASONE [Suspect]
     Indication: PLASMA CELL LEUKAEMIA
     Dosage: DAYS 1, 4, 8 AND 11
     Route: 048
     Dates: start: 20110111, end: 20110211
  4. CYCLOPHOSPHAMIDE [Suspect]
     Indication: PLASMA CELL LEUKAEMIA
     Dosage: DAYS 1 AND 8
     Route: 048
     Dates: start: 20110201, end: 20110208
  5. LENALIDOMIDE [Suspect]
     Indication: PLASMA CELL LEUKAEMIA
     Dosage: DAYS 1 TO 15 ON MONTHS 1, 4, 7 AND 10 AND DAYS 21 AND 28 ON OTHER MONTH FOR A YEAR
     Route: 065
  6. MELPHALAN [Suspect]
     Indication: PLASMA CELL LEUKAEMIA
     Route: 065

REACTIONS (2)
  - Klebsiella sepsis [Fatal]
  - Off label use [Unknown]
